FAERS Safety Report 24044321 (Version 1)
Quarter: 2024Q3

REPORT INFORMATION
  Report Type: Report from Study
  Country: US (occurrence: US)
  Receive Date: 20240703
  Receipt Date: 20240703
  Transmission Date: 20241017
  Serious: No
  Sender: ROCHE
  Company Number: US-ROCHE-3244614

PATIENT
  Age: 68 Year
  Sex: Female

DRUGS (4)
  1. RITUXAN HYCELA [Suspect]
     Active Substance: HYALURONIDASE (HUMAN RECOMBINANT)\RITUXIMAB
     Indication: Follicular lymphoma
     Dosage: INJECT 11.7ML SUBCUTANEOUSLY INTO THE ABDOMEN OVER APPROXIMATELY 5 MINUTES REPEATED EVERY 28 DAYS
     Route: 058
  2. RITUXAN HYCELA [Suspect]
     Active Substance: HYALURONIDASE (HUMAN RECOMBINANT)\RITUXIMAB
     Indication: Mantle cell lymphoma
  3. GAZYVA [Suspect]
     Active Substance: OBINUTUZUMAB
     Indication: Mantle cell lymphoma
     Dosage: OVER 3 HOURS
     Route: 042
  4. REVLIMID [Concomitant]
     Active Substance: LENALIDOMIDE

REACTIONS (3)
  - Product prescribing error [Unknown]
  - No adverse event [Unknown]
  - Off label use [Unknown]
